FAERS Safety Report 14459513 (Version 1)
Quarter: 2018Q1

REPORT INFORMATION
  Report Type: Spontaneous
  Country: US (occurrence: US)
  Receive Date: 20180129
  Receipt Date: 20180129
  Transmission Date: 20180509
  Serious: No
  Sender: FDA-Public Use
  Company Number: None

PATIENT
  Age: 77 Year
  Sex: Male
  Weight: 67.5 kg

DRUGS (15)
  1. TIKOSYN [Concomitant]
     Active Substance: DOFETILIDE
  2. AMBIEN [Concomitant]
     Active Substance: ZOLPIDEM TARTRATE
  3. CLOPIDOGREL [Concomitant]
     Active Substance: CLOPIDOGREL BISULFATE
  4. ASPIRIN. [Concomitant]
     Active Substance: ASPIRIN
  5. XANAX [Concomitant]
     Active Substance: ALPRAZOLAM
  6. WARFARIN [Concomitant]
     Active Substance: WARFARIN
  7. LEVOTHYROXINE. [Concomitant]
     Active Substance: LEVOTHYROXINE
  8. METOPROLOL. [Concomitant]
     Active Substance: METOPROLOL
  9. NORVASK [Concomitant]
     Active Substance: AMLODIPINE BESYLATE
  10. OXYCODONE/ACETAMINOPHEN 10/325 [Suspect]
     Active Substance: ACETAMINOPHEN\OXYCODONE HYDROCHLORIDE
     Indication: BACK PAIN
     Dosage: ?          QUANTITY:1 TABLET(S);?
     Route: 048
     Dates: start: 20171227
  11. OXYCODONE/ACETAMINOPHEN 10/325 [Suspect]
     Active Substance: ACETAMINOPHEN\OXYCODONE HYDROCHLORIDE
     Indication: PAIN IN EXTREMITY
     Dosage: ?          QUANTITY:1 TABLET(S);?
     Route: 048
     Dates: start: 20171227
  12. RAMIPRIL. [Concomitant]
     Active Substance: RAMIPRIL
  13. PERCOCET [Concomitant]
     Active Substance: ACETAMINOPHEN\OXYCODONE HYDROCHLORIDE
  14. LATANOPROST. [Concomitant]
     Active Substance: LATANOPROST
  15. CRESTOR [Concomitant]
     Active Substance: ROSUVASTATIN CALCIUM

REACTIONS (1)
  - Therapy non-responder [None]

NARRATIVE: CASE EVENT DATE: 20171227
